FAERS Safety Report 11451075 (Version 11)
Quarter: 2018Q2

REPORT INFORMATION
  Report Type: Report from Study
  Country: DE (occurrence: DE)
  Receive Date: 20150903
  Receipt Date: 20180628
  Transmission Date: 20180711
  Serious: Yes (Hospitalization)
  Sender: FDA-Public Use
  Company Number: DE-ROCHE-1629120

PATIENT
  Age: 50 Year
  Sex: Female
  Weight: 84 kg

DRUGS (14)
  1. ROACTEMRA [Suspect]
     Active Substance: TOCILIZUMAB
     Indication: RHEUMATOID ARTHRITIS
     Route: 058
     Dates: start: 20150619
  2. ROACTEMRA [Suspect]
     Active Substance: TOCILIZUMAB
     Route: 058
     Dates: start: 20171110
  3. TORASEMIDE [Concomitant]
     Active Substance: TORSEMIDE
  4. FOLIC ACID. [Concomitant]
     Active Substance: FOLIC ACID
  5. ROACTEMRA [Suspect]
     Active Substance: TOCILIZUMAB
     Route: 058
  6. CORTISONE [Concomitant]
     Active Substance: CORTISONE\HYDROCORTISONE
     Indication: RHEUMATOID ARTHRITIS
     Route: 065
  7. PREGABALIN. [Concomitant]
     Active Substance: PREGABALIN
     Route: 065
  8. METOPROLOL. [Concomitant]
     Active Substance: METOPROLOL
     Route: 065
  9. OMEP [Concomitant]
     Active Substance: OMEPRAZOLE
     Route: 065
  10. LEVODOPA [Concomitant]
     Active Substance: LEVODOPA
     Dosage: 1 EVENING, 2 AT NIGHT
     Route: 065
  11. CORTISONE [Concomitant]
     Active Substance: CORTISONE\HYDROCORTISONE
     Route: 065
  12. VIGANTOLETTEN [Concomitant]
     Active Substance: CHOLECALCIFEROL
  13. LEVODOPA [Concomitant]
     Active Substance: LEVODOPA
     Dosage: 25 MG IN THE EVENING, 50 MG AT NIGHT
     Route: 065
  14. TILIDIN [Concomitant]
     Active Substance: NALOXONE HYDROCHLORIDE\TILIDINE HYDROCHLORIDE
     Route: 065
     Dates: start: 20180522

REACTIONS (14)
  - Wound haemorrhage [Unknown]
  - Fluid retention [Not Recovered/Not Resolved]
  - Dyspnoea [Unknown]
  - Impaired healing [Recovered/Resolved]
  - Rheumatoid arthritis [Not Recovered/Not Resolved]
  - Tooth disorder [Unknown]
  - Pain [Unknown]
  - Rib fracture [Unknown]
  - Cough [Unknown]
  - Inappropriate schedule of drug administration [Unknown]
  - Vitamin D deficiency [Unknown]
  - Bronchitis [Unknown]
  - Rheumatoid lung [Unknown]
  - Musculoskeletal stiffness [Unknown]

NARRATIVE: CASE EVENT DATE: 20150619
